FAERS Safety Report 5385516-6 (Version None)
Quarter: 2007Q3

REPORT INFORMATION
  Report Type: 
  Country: None (occurrence: None)
  Receive Date: 20070709
  Receipt Date: 20070628
  Transmission Date: 20080115
  Serious: Yes (Other)
  Sender: FDA-Public Use
  Company Number: CHNY2007NL02406

PATIENT
  Age: 32 Year
  Sex: Male
  Weight: 75 kg

DRUGS (2)
  1. CLEMASTINE FUMARATE [Suspect]
     Indication: URTICARIA
     Dosage: 1 MG, BID, ORAL
     Route: 048
     Dates: start: 20070327, end: 20070327
  2. PAROXETINE [Concomitant]

REACTIONS (2)
  - AGGRESSION [None]
  - SUICIDAL IDEATION [None]
